FAERS Safety Report 17280981 (Version 1)
Quarter: 2020Q1

REPORT INFORMATION
  Report Type: Spontaneous
  Country: US (occurrence: US)
  Receive Date: 20200117
  Receipt Date: 20200117
  Transmission Date: 20200409
  Serious: No
  Sender: FDA-Public Use
  Company Number: US-ELI_LILLY_AND_COMPANY-US202001006339

PATIENT
  Age: 74 Year
  Sex: Female

DRUGS (2)
  1. HUMALOG [Suspect]
     Active Substance: INSULIN LISPRO
     Indication: TYPE 1 DIABETES MELLITUS
     Dosage: UNK UNK, UNKNOWN
     Route: 058
     Dates: start: 1958
  2. HUMALOG [Suspect]
     Active Substance: INSULIN LISPRO
     Dosage: 100 U, UNKNOWN (90-100)
     Route: 058

REACTIONS (1)
  - Diabetic retinopathy [Not Recovered/Not Resolved]
